FAERS Safety Report 12288534 (Version 1)
Quarter: 2016Q2

REPORT INFORMATION
  Report Type: Spontaneous
  Country: CY (occurrence: CY)
  Receive Date: 20160420
  Receipt Date: 20160420
  Transmission Date: 20160815
  Serious: Yes (Other)
  Sender: FDA-Public Use
  Company Number: CY-ROCHE-1743932

PATIENT
  Age: 56 Year
  Sex: Male

DRUGS (2)
  1. METALYSE [Suspect]
     Active Substance: TENECTEPLASE
     Indication: CHEST PAIN
     Route: 065
  2. METALYSE [Suspect]
     Active Substance: TENECTEPLASE
     Indication: ELECTROCARDIOGRAM ST SEGMENT ELEVATION

REACTIONS (2)
  - Ventricular fibrillation [Unknown]
  - Myocardial ischaemia [Recovered/Resolved]
